FAERS Safety Report 9463503 (Version 1)
Quarter: 2013Q3

REPORT INFORMATION
  Report Type: Spontaneous
  Country: US (occurrence: US)
  Receive Date: 20130819
  Receipt Date: 20130819
  Transmission Date: 20140515
  Serious: No
  Sender: FDA-Public Use
  Company Number: US-009507513-1308USA004694

PATIENT
  Age: 67 Year
  Sex: Male
  Weight: 88.44 kg

DRUGS (11)
  1. VICTRELIS [Suspect]
     Indication: HEPATITIS C
     Dosage: 800 MG, TID, 4 CAPSULES BY MOUTH
     Route: 048
  2. PEGASYS [Suspect]
     Indication: HEPATITIS C
     Dosage: 180 MICROGRAM/M
     Route: 058
  3. RIBAPAK [Suspect]
     Indication: HEPATITIS C
     Dosage: 1200MG/DAY
     Route: 048
  4. VITAMINS (UNSPECIFIED) [Concomitant]
     Route: 048
  5. CYANOCOBALAMIN [Concomitant]
     Dosage: 1000 CR
     Route: 048
  6. ATENOLOL [Concomitant]
     Dosage: 100 MG
     Route: 048
  7. NEURONTIN [Concomitant]
     Dosage: 800 MG
     Route: 048
  8. BACLOFEN [Concomitant]
     Dosage: 20 MG
     Route: 048
  9. PROCRIT [Concomitant]
     Dosage: 10000/ML
     Route: 030
  10. PROBIOTICS (UNSPECIFIED) [Concomitant]
     Route: 048
  11. FIBER (UNSPECIFIED) [Concomitant]
     Dosage: CHW
     Route: 048

REACTIONS (1)
  - Haemoglobin decreased [Unknown]
